FAERS Safety Report 4620383-7 (Version None)
Quarter: 2005Q1

REPORT INFORMATION
  Report Type: 
  Country: None (occurrence: None)
  Receive Date: 20050321
  Receipt Date: 20050321
  Transmission Date: 20050727
  Serious: Yes (Hospitalization)
  Sender: FDA-Public Use
  Company Number: None

PATIENT
  Age: 82 Year
  Sex: Female
  Weight: 46.2669 kg

DRUGS (4)
  1. CELEBREX [Suspect]
     Indication: OSTEOARTHRITIS
     Dosage: 200MG  DAILY  ORAL
     Route: 048
  2. ECOTRIN [Suspect]
     Indication: PROPHYLAXIS
     Dosage: 81MG   DAILY   ORAL
     Route: 048
  3. MAXZIDE [Concomitant]
  4. TOPROL-XL [Concomitant]

REACTIONS (5)
  - ABDOMINAL PAIN UPPER [None]
  - BLINDNESS [None]
  - DIZZINESS [None]
  - GASTROINTESTINAL ULCER [None]
  - UPPER GASTROINTESTINAL HAEMORRHAGE [None]
